FAERS Safety Report 7224120-1 (Version None)
Quarter: 2011Q1

REPORT INFORMATION
  Report Type: 
  Country: None (occurrence: None)
  Receive Date: 20110106
  Receipt Date: 20110106
  Transmission Date: 20110831
  Serious: Yes (Other)
  Sender: FDA-Public Use
  Company Number: None

PATIENT
  Sex: Female
  Weight: 99.7913 kg

DRUGS (2)
  1. SINGULAIR [Suspect]
     Indication: ASTHMA
     Dosage: 10MG 1X A DAY PO
     Route: 048
  2. SYMBICORT [Concomitant]

REACTIONS (7)
  - DEREALISATION [None]
  - ANGER [None]
  - AGGRESSION [None]
  - PANIC ATTACK [None]
  - IRRITABILITY [None]
  - ANXIETY [None]
  - TREMOR [None]
